FAERS Safety Report 4959955-9 (Version None)
Quarter: 2006Q1

REPORT INFORMATION
  Report Type: 
  Country: None (occurrence: None)
  Receive Date: 20060331
  Receipt Date: 20051215
  Transmission Date: 20060701
  Serious: Yes (Disabling)
  Sender: FDA-Public Use
  Company Number: US-MERCK-0512USA02471

PATIENT
  Age: 49 Year
  Sex: Male
  Weight: 59 kg

DRUGS (2)
  1. VIOXX [Suspect]
     Route: 048
     Dates: start: 20000101
  2. TYLENOL (CAPLET) [Concomitant]
     Route: 065

REACTIONS (5)
  - ABASIA [None]
  - ESSENTIAL HYPERTENSION [None]
  - MYOCARDIAL INFARCTION [None]
  - OEDEMA [None]
  - VIRAL INFECTION [None]
